FAERS Safety Report 6575670-2 (Version None)
Quarter: 2010Q1

REPORT INFORMATION
  Report Type: 
  Country: None (occurrence: None)
  Receive Date: 20100209
  Receipt Date: 20100202
  Transmission Date: 20100710
  Serious: Yes (Hospitalization, Other)
  Sender: FDA-Public Use
  Company Number: US-MERCK-0904USA03006

PATIENT
  Age: 60 Year
  Sex: Female

DRUGS (2)
  1. FOSAMAX [Suspect]
     Indication: OSTEOPOROSIS
     Route: 048
     Dates: start: 20040101
  2. ZOMETA [Suspect]
     Indication: BONE NEOPLASM MALIGNANT
     Route: 042
     Dates: start: 20060101

REACTIONS (16)
  - ADVERSE EVENT [None]
  - ANXIETY [None]
  - BONE NEOPLASM MALIGNANT [None]
  - CHEST DISCOMFORT [None]
  - DEPRESSION [None]
  - EDENTULOUS [None]
  - EXOSTOSIS [None]
  - FISTULA DISCHARGE [None]
  - GINGIVAL BLEEDING [None]
  - GINGIVAL DISORDER [None]
  - IMPAIRED HEALING [None]
  - ORAL INFECTION [None]
  - OSTEOMYELITIS [None]
  - OSTEONECROSIS [None]
  - OSTEORADIONECROSIS [None]
  - STOMATITIS [None]
